FAERS Safety Report 10233849 (Version 1)
Quarter: 2014Q2

REPORT INFORMATION
  Report Type: Spontaneous
  Country: IT (occurrence: IT)
  Receive Date: 20140612
  Receipt Date: 20140612
  Transmission Date: 20141212
  Serious: Yes (Hospitalization)
  Sender: FDA-Public Use
  Company Number: IT-WATSON-2014-12183

PATIENT
  Age: 55 Year
  Sex: Male

DRUGS (2)
  1. LORAZEPAM [Suspect]
     Indication: DRUG ABUSE
     Dosage: 20 DF, TOTAL
     Route: 048
     Dates: start: 20140124, end: 20140124
  2. KEPPRA [Concomitant]
     Indication: PRODUCT USED FOR UNKNOWN INDICATION
     Dosage: 2 DF, UNK
     Route: 048

REACTIONS (4)
  - Confusional state [Unknown]
  - Drug abuse [Unknown]
  - Dysarthria [Unknown]
  - Drug abuse [Unknown]
